FAERS Safety Report 7630673-1 (Version None)
Quarter: 2011Q3

REPORT INFORMATION
  Report Type: 
  Country: None (occurrence: None)
  Receive Date: 20110722
  Receipt Date: 20110719
  Transmission Date: 20111222
  Serious: Yes (Hospitalization)
  Sender: FDA-Public Use
  Company Number: US-GILEAD-2011-0042026

PATIENT
  Sex: Female

DRUGS (4)
  1. EPOPROSTENOL SODIUM [Concomitant]
  2. REVATIO [Concomitant]
  3. FLOLAN [Concomitant]
  4. LETAIRIS [Suspect]
     Indication: PRODUCT USED FOR UNKNOWN INDICATION
     Route: 048
     Dates: start: 20080305

REACTIONS (3)
  - DYSPNOEA [None]
  - PULMONARY HYPERTENSION [None]
  - OEDEMA [None]
